FAERS Safety Report 7312896-4 (Version None)
Quarter: 2011Q1

REPORT INFORMATION
  Report Type: 
  Country: None (occurrence: None)
  Receive Date: 20110224
  Receipt Date: 20110125
  Transmission Date: 20110831
  Serious: Yes (Other)
  Sender: FDA-Public Use
  Company Number: PHHY2010JP56866

PATIENT
  Sex: Male

DRUGS (4)
  1. ZOLADEX [Concomitant]
     Indication: PROSTATE CANCER
     Dosage: 10.8 MG, UNK
     Route: 058
     Dates: start: 20030401, end: 20090827
  2. CGP 42446 [Suspect]
     Indication: METASTASES TO BONE
     Dosage: 4MG (EVERY 4 WEEKS)
     Route: 041
     Dates: start: 20080108, end: 20091105
  3. PROTECADIN [Concomitant]
     Dosage: 20 MG, UNK
     Route: 048
     Dates: start: 20070724, end: 20100501
  4. BETAMETHASONE [Concomitant]
     Indication: PROSTATE CANCER
     Dosage: 2 MG, UNK
     Route: 048
     Dates: start: 20070724, end: 20100501

REACTIONS (3)
  - BLOOD UREA INCREASED [None]
  - PSEUDOMEMBRANOUS COLITIS [None]
  - BLOOD CREATININE INCREASED [None]
